FAERS Safety Report 11079806 (Version 1)
Quarter: 2015Q2

REPORT INFORMATION
  Report Type: Other
  Country: DE (occurrence: AU)
  Receive Date: 20150430
  Receipt Date: 20150430
  Transmission Date: 20150821
  Serious: Yes (Hospitalization)
  Sender: FDA-Public Use
  Company Number: AU-MERZ NORTH AMERICA, INC.-15MRZ-00159

PATIENT
  Age: 39 Year
  Sex: Female

DRUGS (4)
  1. AETHOXYSKLEROL [Suspect]
     Active Substance: POLIDOCANOL
     Indication: VARICOSE VEIN
     Dosage: 1 ML INJECTION IN INNER THIGH
     Route: 013
     Dates: start: 200609
  2. YASMIN [Concomitant]
     Active Substance: DROSPIRENONE\ETHINYL ESTRADIOL
  3. MULTIVITAMINS [Concomitant]
     Active Substance: VITAMINS
  4. MAGNESIUM SUPPLEMENTS [Concomitant]

REACTIONS (6)
  - Localised oedema [Recovered/Resolved]
  - Tenderness [Recovered/Resolved]
  - Purpura [Recovered/Resolved]
  - Injection site discolouration [Recovered/Resolved]
  - Pain [Recovered/Resolved]
  - Neuralgia [Recovered/Resolved]

NARRATIVE: CASE EVENT DATE: 2006
